FAERS Safety Report 9147221 (Version 1)
Quarter: 2013Q1

REPORT INFORMATION
  Report Type: Spontaneous
  Country: US (occurrence: US)
  Receive Date: 20130307
  Receipt Date: 20130307
  Transmission Date: 20140127
  Serious: Yes (Hospitalization, Other)
  Sender: FDA-Public Use
  Company Number: US-PFIZER INC-2013078689

PATIENT
  Age: 63 Year
  Sex: Female
  Weight: 78.9 kg

DRUGS (9)
  1. NEURONTIN [Suspect]
     Indication: PAIN
     Dosage: UNK(HALF TABLET OF 600 MG IN THE MORNING AND ONE TABLET OF 600 MG AT NIGHT), 2X/DAY
     Route: 048
  2. NEURONTIN [Suspect]
     Indication: FIBROMYALGIA
  3. NEURONTIN [Suspect]
     Indication: SYSTEMIC LUPUS ERYTHEMATOSUS
  4. NORVASC [Suspect]
     Indication: HYPERTENSION
     Dosage: 10 MG, 1X/DAY
  5. NORVASC [Suspect]
     Indication: ISCHAEMIC HEART DISEASE PROPHYLAXIS
  6. ZOLOFT [Suspect]
     Indication: PAIN
     Dosage: UNK(HALF TABLET OF 50 MG IN THE MORNING ),1X/DAY
     Route: 048
  7. ZOLOFT [Suspect]
     Indication: FIBROMYALGIA
  8. ZOLOFT [Suspect]
     Indication: SYSTEMIC LUPUS ERYTHEMATOSUS
  9. ALDACTONE [Suspect]
     Indication: ISCHAEMIC HEART DISEASE PROPHYLAXIS
     Dosage: 50 MG, 1X/DAY
     Dates: start: 2012

REACTIONS (1)
  - Pneumonia [Recovering/Resolving]
